FAERS Safety Report 4948459-5 (Version None)
Quarter: 2006Q1

REPORT INFORMATION
  Report Type: 
  Country: None (occurrence: None)
  Receive Date: 20060314
  Receipt Date: 20060309
  Transmission Date: 20060701
  Serious: Yes (Death)
  Sender: FDA-Public Use
  Company Number: TCI2006A00882

PATIENT
  Age: 74 Year
  Sex: Male

DRUGS (6)
  1. LEUPROLIDE ACETATE [Suspect]
     Indication: PROSTATE CANCER STAGE IV
     Dosage: 3.75 MG (3.75 MG, 1 IN 28 D); SUBCUTANEOUS
     Route: 058
     Dates: start: 20010912, end: 20040816
  2. LEUPROLIDE ACETATE [Suspect]
     Indication: PROSTATE CANCER STAGE IV
     Dosage: 3.75 MG (3.75 MG, 1 IN 28 D); SUBCUTANEOUS
     Route: 058
     Dates: start: 20050131, end: 20051220
  3. LEUPROLIDE ACETATE [Suspect]
     Indication: PROSTATE CANCER STAGE IV
     Dosage: 3.75 MG (3.75 MG, 1 IN 28 D); SUBCUTANEOUS
     Route: 058
     Dates: start: 20060206, end: 20060206
  4. CHLORMADINONE ACETATE TAB [Concomitant]
  5. HONVAN (FOSFESTROL TETRASODIUM) (TABLETS) [Concomitant]
  6. CASODEX [Concomitant]

REACTIONS (3)
  - CARDIAC ARREST [None]
  - HAEMATURIA [None]
  - INTERSTITIAL LUNG DISEASE [None]
